FAERS Safety Report 7650772-8 (Version None)
Quarter: 2011Q3

REPORT INFORMATION
  Report Type: 
  Country: None (occurrence: None)
  Receive Date: 20110802
  Receipt Date: 20110728
  Transmission Date: 20111222
  Serious: Yes (Other)
  Sender: FDA-Public Use
  Company Number: US-PFIZER INC-2011172362

PATIENT
  Sex: Female

DRUGS (1)
  1. XALATAN [Suspect]
     Indication: GLAUCOMA
     Dosage: DAILY AT NIGHT
     Route: 047
     Dates: start: 20100201

REACTIONS (2)
  - RETINAL VASCULAR THROMBOSIS [None]
  - KERATITIS BACTERIAL [None]
